FAERS Safety Report 6780234-1 (Version None)
Quarter: 2010Q2

REPORT INFORMATION
  Report Type: 
  Country: None (occurrence: None)
  Receive Date: 20100618
  Receipt Date: 20100607
  Transmission Date: 20101027
  Serious: Yes (Hospitalization)
  Sender: FDA-Public Use
  Company Number: JP-ROCHE-680522

PATIENT
  Sex: Male
  Weight: 53 kg

DRUGS (31)
  1. TOCILIZUMAB [Suspect]
     Indication: RHEUMATOID ARTHRITIS
     Dosage: FORM: INJECTION
     Route: 041
     Dates: start: 20080619, end: 20080619
  2. TOCILIZUMAB [Suspect]
     Dosage: FORM: INJECTION
     Route: 041
     Dates: start: 20080717, end: 20080717
  3. TOCILIZUMAB [Suspect]
     Dosage: FORM: INJECTION
     Route: 041
     Dates: start: 20080821, end: 20080821
  4. TOCILIZUMAB [Suspect]
     Dosage: FORM: INJECTION
     Route: 041
     Dates: start: 20080918, end: 20080918
  5. TOCILIZUMAB [Suspect]
     Dosage: FORM: INJECTION
     Route: 041
     Dates: start: 20081016, end: 20081016
  6. TOCILIZUMAB [Suspect]
     Dosage: FORM: INJECTION
     Route: 041
     Dates: start: 20081113, end: 20081113
  7. TOCILIZUMAB [Suspect]
     Dosage: FORM: INJECTION
     Route: 041
     Dates: start: 20081211, end: 20081211
  8. TOCILIZUMAB [Suspect]
     Dosage: FORM: INJECTION
     Route: 041
     Dates: start: 20090122, end: 20090122
  9. TOCILIZUMAB [Suspect]
     Dosage: FORM: INJECTION
     Route: 041
     Dates: start: 20090226, end: 20090226
  10. TOCILIZUMAB [Suspect]
     Dosage: FORM: INJECTION
     Route: 041
     Dates: start: 20090430, end: 20090430
  11. TOCILIZUMAB [Suspect]
     Dosage: FORM: INJECTION
     Route: 041
     Dates: start: 20090528, end: 20090528
  12. TOCILIZUMAB [Suspect]
     Dosage: FORM: INJECTION
     Route: 041
     Dates: start: 20090625, end: 20090625
  13. TOCILIZUMAB [Suspect]
     Dosage: FORM: INJECTION
     Route: 041
     Dates: start: 20090723, end: 20090723
  14. TOCILIZUMAB [Suspect]
     Dosage: FORM: INJECTION
     Route: 041
     Dates: start: 20090820, end: 20090820
  15. TOCILIZUMAB [Suspect]
     Dosage: FORM: INJECTION
     Route: 041
     Dates: start: 20090917, end: 20090917
  16. TOCILIZUMAB [Suspect]
     Dosage: FORM: INJECTION
     Route: 041
     Dates: start: 20090101
  17. LOXONIN [Suspect]
     Indication: RHEUMATOID ARTHRITIS
     Dosage: DOSE FORM: PERORAL AGENT
     Route: 048
     Dates: end: 20080821
  18. VOLTAREN [Suspect]
     Indication: RHEUMATOID ARTHRITIS
     Dosage: DOSE FORM:SUPPOSITORIAE RECTALE
     Route: 054
     Dates: end: 20071226
  19. VOLTAREN [Suspect]
     Dosage: DOSE FORM: SUPPOSITORIAE RECTALE
     Route: 054
     Dates: start: 20071227, end: 20091116
  20. PROGRAF [Suspect]
     Indication: RHEUMATOID ARTHRITIS
     Dosage: DRUG NAME: PROGRAF(TACROLIMUS HYDRATE)
     Route: 048
     Dates: start: 20071227, end: 20080814
  21. METHOTREXATE [Suspect]
     Route: 048
     Dates: end: 20091111
  22. PREDONINE [Concomitant]
     Route: 048
     Dates: end: 20090916
  23. PREDONINE [Concomitant]
     Route: 048
     Dates: start: 20090917, end: 20091030
  24. ULGUT [Concomitant]
     Route: 048
     Dates: end: 20080821
  25. FELBINAC [Concomitant]
     Dosage: DRUG REPORTED AS SELTOUCH, DOSE FORM: TAPE.
     Route: 061
     Dates: end: 20091116
  26. GASTER D [Concomitant]
     Route: 048
     Dates: end: 20080820
  27. BONALON [Concomitant]
     Dosage: REPORTED DRUG: BONALON 5MG(ALENDRONATE SODIUM HYDRATE)
     Route: 048
     Dates: end: 20080814
  28. AMOBAN [Concomitant]
     Route: 048
     Dates: start: 20071101, end: 20071226
  29. HALCION [Concomitant]
     Route: 048
     Dates: start: 20071227, end: 20091116
  30. CELCOX [Concomitant]
     Route: 048
     Dates: start: 20080821, end: 20091116
  31. ACTONEL [Concomitant]
     Route: 048
     Dates: start: 20081113, end: 20090221

REACTIONS (7)
  - DIZZINESS [None]
  - DUODENAL ULCER [None]
  - HAEMATEMESIS [None]
  - NASOPHARYNGITIS [None]
  - NAUSEA [None]
  - REFLUX OESOPHAGITIS [None]
  - RENAL IMPAIRMENT [None]
